FAERS Safety Report 16632035 (Version 2)
Quarter: 2019Q3

REPORT INFORMATION
  Report Type: Spontaneous
  Country: CL (occurrence: CL)
  Receive Date: 20190725
  Receipt Date: 20190729
  Transmission Date: 20191004
  Serious: Yes (Other)
  Sender: FDA-Public Use
  Company Number: CL-PFIZER INC-2019315318

PATIENT
  Sex: Female

DRUGS (1)
  1. DUAVIVE [Suspect]
     Active Substance: BAZEDOXIFENE ACETATE\ESTROGENS, CONJUGATED
     Indication: MENOPAUSE
     Dosage: UNK
     Route: 048

REACTIONS (1)
  - Vaginal haemorrhage [Unknown]
